FAERS Safety Report 23261023 (Version 1)
Quarter: 2023Q4

REPORT INFORMATION
  Report Type: Spontaneous
  Country: FR (occurrence: FR)
  Receive Date: 20231205
  Receipt Date: 20231205
  Transmission Date: 20240109
  Serious: Yes (Hospitalization, Other)
  Sender: FDA-Public Use
  Company Number: FR-AFSSAPS-PC2023000685

PATIENT
  Age: 65 Year
  Sex: Male
  Weight: 85 kg

DRUGS (6)
  1. LANSOPRAZOLE [Suspect]
     Active Substance: LANSOPRAZOLE
     Indication: Acute coronary syndrome
     Dosage: 15 MILLIGRAM, ONCE A DAY
     Route: 048
     Dates: start: 20230301, end: 20230522
  2. RAMIPRIL [Suspect]
     Active Substance: RAMIPRIL
     Indication: Acute coronary syndrome
     Dosage: 5 MILLIGRAM, ONCE A DAY
     Route: 048
     Dates: start: 20230301
  3. TAHOR [Suspect]
     Active Substance: ATORVASTATIN CALCIUM
     Indication: Acute coronary syndrome
     Dosage: 80 MILLIGRAM, ONCE A DAY
     Route: 048
     Dates: start: 20230301
  4. TICAGRELOR [Suspect]
     Active Substance: TICAGRELOR
     Indication: Acute coronary syndrome
     Dosage: 1 DOSAGE FORM, ONCE A DAY
     Route: 048
     Dates: start: 20230301
  5. KARDEGIC [Suspect]
     Active Substance: ASPIRIN DL-LYSINE
     Indication: Acute coronary syndrome
     Dosage: 1 DOSAGE FORM, ONCE A DAY (1 SACHET PER DAY)
     Route: 048
     Dates: start: 20230301
  6. BISOPROLOL [Suspect]
     Active Substance: BISOPROLOL\BISOPROLOL FUMARATE
     Indication: Acute coronary syndrome
     Dosage: 5 MILLIGRAM, ONCE A DAY
     Route: 048
     Dates: start: 20230301, end: 202305

REACTIONS (1)
  - Subacute cutaneous lupus erythematosus [Recovering/Resolving]

NARRATIVE: CASE EVENT DATE: 20230419
